FAERS Safety Report 8533551-9 (Version None)
Quarter: 2012Q3

REPORT INFORMATION
  Report Type: 
  Country: None (occurrence: None)
  Receive Date: 20120717
  Receipt Date: 20120717
  Transmission Date: 20120928
  Serious: Yes (Other)
  Sender: FDA-Public Use
  Company Number: None

PATIENT
  Sex: Female

DRUGS (8)
  1. ATENELOL [Concomitant]
  2. POTASSIUM CHLORIDE [Concomitant]
  3. GABAPENTIN [Concomitant]
  4. CHLORTHALID [Concomitant]
  5. LISINOPRIL [Concomitant]
  6. ZYRTEC [Concomitant]
  7. AMLODIPINE [Suspect]
     Indication: HYPERTENSION
     Dosage: 5 MG ONCE A DAY PO
     Route: 048
     Dates: start: 20120627, end: 20120628
  8. ASPIRIN [Concomitant]

REACTIONS (2)
  - INSOMNIA [None]
  - SENSORY DISTURBANCE [None]
